FAERS Safety Report 22104094 (Version 1)
Quarter: 2023Q1

REPORT INFORMATION
  Report Type: Spontaneous
  Country: US (occurrence: None)
  Receive Date: 20230316
  Receipt Date: 20230316
  Transmission Date: 20230418
  Serious: Yes (Hospitalization)
  Sender: FDA-Public Use
  Company Number: None

PATIENT
  Age: 52 Year

DRUGS (12)
  1. ABIRATERONE [Suspect]
     Active Substance: ABIRATERONE
     Indication: Prostate cancer
     Dosage: FREQUENCY : DAILY;?
     Route: 048
     Dates: start: 20221102
  2. CEFEPIME [Concomitant]
  3. ALLOPURINOL [Concomitant]
  4. HYDROCODONE [Concomitant]
  5. LINEZOLID [Concomitant]
  6. MAGNESIUM CARBONATE [Concomitant]
  7. OXYBUTYNIN [Concomitant]
  8. PANTOPRAZOLE [Concomitant]
  9. POLYETHYLENE [Concomitant]
  10. PREDNISONE [Concomitant]
  11. TAMSULOSIN [Concomitant]
  12. XANAX [Concomitant]

REACTIONS (3)
  - Hallucination [None]
  - Confusional state [None]
  - Therapy interrupted [None]
